FAERS Safety Report 17039071 (Version 1)
Quarter: 2019Q4

REPORT INFORMATION
  Report Type: Spontaneous
  Country: US (occurrence: US)
  Receive Date: 20191115
  Receipt Date: 20191115
  Transmission Date: 20200122
  Serious: Yes (Hospitalization, Other)
  Sender: FDA-Public Use
  Company Number: US-SA-2019SA310652

PATIENT
  Age: 47 Year
  Sex: Male

DRUGS (2)
  1. KEVZARA [Suspect]
     Active Substance: SARILUMAB
  2. HUMIRA [Suspect]
     Active Substance: ADALIMUMAB

REACTIONS (4)
  - Bacterial test positive [Recovering/Resolving]
  - Cellulitis [Recovering/Resolving]
  - Arthritis bacterial [Recovering/Resolving]
  - Infection [Recovering/Resolving]
